FAERS Safety Report 6520975-4 (Version None)
Quarter: 2009Q4

REPORT INFORMATION
  Report Type: 
  Country: None (occurrence: None)
  Receive Date: 20091229
  Receipt Date: 20091221
  Transmission Date: 20100525
  Serious: Yes (Death, Life-Threatening, Hospitalization, Other)
  Sender: FDA-Public Use
  Company Number: US-PFIZER INC-2009292072

PATIENT
  Age: 68 Year
  Sex: Female
  Weight: 70 kg

DRUGS (10)
  1. AMPICILLIN AND SULBACTAM [Suspect]
     Indication: PNEUMONIA
     Dosage: UNK
     Dates: start: 20090701
  2. TOBRAMYCIN SULFATE [Suspect]
     Route: 042
  3. CLARITHROMYCIN [Suspect]
     Indication: PNEUMONIA
     Dosage: UNK
  4. CEFOTAXIME [Suspect]
     Indication: PNEUMONIA
  5. LEVOTHYROXINE [Concomitant]
     Indication: HYPOTHYROIDISM
  6. CYANOCOBALAMIN [Concomitant]
     Indication: VITAMIN B12 DEFICIENCY
  7. RAMIPRIL [Concomitant]
     Indication: HYPERTENSION
     Dosage: UNK
     Dates: end: 20090702
  8. AMLODIPINE [Concomitant]
     Indication: HYPERTENSION
     Dosage: UNK
     Dates: end: 20090702
  9. HYDROCHLOROTHIAZIDE [Concomitant]
     Indication: HYPERTENSION
     Dosage: UNK
     Dates: end: 20090702
  10. METFORMIN [Concomitant]

REACTIONS (5)
  - GENERAL PHYSICAL CONDITION ABNORMAL [None]
  - HEPATITIS TOXIC [None]
  - LIVER INJURY [None]
  - PNEUMONIA [None]
  - SEPTIC SHOCK [None]
